FAERS Safety Report 18575549 (Version 1)
Quarter: 2020Q4

REPORT INFORMATION
  Report Type: Spontaneous
  Country: CN (occurrence: CN)
  Receive Date: 20201203
  Receipt Date: 20201203
  Transmission Date: 20210114
  Serious: Yes (Hospitalization)
  Sender: FDA-Public Use
  Company Number: CN-BAXTER-2020BAX024471

PATIENT
  Age: 13 Year
  Sex: Female
  Weight: 48 kg

DRUGS (2)
  1. HOLOXAN [Suspect]
     Active Substance: IFOSFAMIDE
     Indication: BONE CANCER
     Dosage: DAY 1-5, HOLOXAN + NS (500ML)
     Route: 041
     Dates: start: 20201011, end: 20201015
  2. 0.9% SODIUM CHLORIDE INJECTION [Suspect]
     Active Substance: SODIUM CHLORIDE
     Indication: MEDICATION DILUTION
     Dosage: DAY 1-5, NS + HOLOXAN (4.5 G)
     Route: 041
     Dates: start: 20201011, end: 20201015

REACTIONS (1)
  - Myelosuppression [Recovering/Resolving]

NARRATIVE: CASE EVENT DATE: 20201020
